FAERS Safety Report 9710114 (Version 1)
Quarter: 2013Q4

REPORT INFORMATION
  Report Type: Spontaneous
  Country: MX (occurrence: MX)
  Receive Date: 20131126
  Receipt Date: 20131126
  Transmission Date: 20140711
  Serious: Yes (Other)
  Sender: FDA-Public Use
  Company Number: PHHY2013MX135864

PATIENT
  Age: 47 Year
  Sex: Female

DRUGS (5)
  1. CO-DIOVAN [Suspect]
     Indication: HYPERTENSION
     Dosage: 1 DF, DAILY
     Route: 048
     Dates: start: 2007, end: 201311
  2. CO-DIOVAN [Suspect]
     Dosage: 2 DF, DAILY
     Route: 048
     Dates: start: 201311, end: 201311
  3. CO-DIOVAN [Suspect]
     Dosage: 1 DF, DAILY
     Route: 048
     Dates: start: 201311
  4. GALVUS MET [Suspect]
     Indication: DIABETES MELLITUS
     Dosage: 1 DF, DAILY
     Route: 048
     Dates: start: 2010
  5. MULTIVIT//VITAMINS NOS [Concomitant]
     Indication: DIABETES MELLITUS
     Dosage: 1 DF, QD
     Dates: start: 201311

REACTIONS (3)
  - Infarction [Unknown]
  - Hypertension [Recovered/Resolved]
  - Cardiomegaly [Unknown]
